FAERS Safety Report 7574689-2 (Version None)
Quarter: 2011Q2

REPORT INFORMATION
  Report Type: 
  Country: None (occurrence: None)
  Receive Date: 20110627
  Receipt Date: 20110621
  Transmission Date: 20111010
  Serious: Yes (Other)
  Sender: FDA-Public Use
  Company Number: US-JNJFOC-20110610710

PATIENT
  Sex: Male

DRUGS (2)
  1. STELARA [Suspect]
     Indication: PSORIASIS
     Route: 058
     Dates: start: 20101101
  2. STELARA [Suspect]
     Route: 058
     Dates: start: 20110412

REACTIONS (2)
  - INFECTION [None]
  - TOOTH ABSCESS [None]
